FAERS Safety Report 8802777 (Version 1)
Quarter: 2012Q4

REPORT INFORMATION
  Report Type: 
  Country: US (occurrence: US)
  Receive Date: 20120921
  Receipt Date: 20120921
  Transmission Date: 20130627
  Serious: No
  Sender: FDA-Public Use
  Company Number: US-ASTRAZENECA-2012SE70163

PATIENT
  Age: 81 Year
  Sex: Female

DRUGS (2)
  1. PULMICORT RESPULES [Suspect]
     Indication: ASTHMA
     Dosage: 0.5 MG/ 2 ML TWICE DAILY
     Route: 055
  2. PULMICORT RESPULES [Suspect]
     Indication: PNEUMONIA ASPIRATION
     Dosage: 0.5 MG/ 2 ML TWICE DAILY
     Route: 055

REACTIONS (7)
  - Dementia [Unknown]
  - Dyslipidaemia [Unknown]
  - Hypertension [Unknown]
  - Hyporeflexia [Unknown]
  - Depression [Unknown]
  - Off label use [Unknown]
  - Off label use [Unknown]
